FAERS Safety Report 14897947 (Version 1)
Quarter: 2018Q2

REPORT INFORMATION
  Report Type: Spontaneous
  Country: US (occurrence: US)
  Receive Date: 20180515
  Receipt Date: 20180515
  Transmission Date: 20180711
  Serious: Yes (Other)
  Sender: FDA-Public Use
  Company Number: US-MYLANLABS-2018M1030794

PATIENT
  Sex: Female
  Weight: 75 kg

DRUGS (4)
  1. ESTRADIOL TRANSDERMAL SYSTEM [Suspect]
     Active Substance: ESTRADIOL
     Indication: HOT FLUSH
     Dosage: TWICE-WEEKLY 0.1 MG PER DAY PATCHES
     Route: 062
     Dates: start: 201708
  2. ESTRADIOL TRANSDERMAL SYSTEM [Suspect]
     Active Substance: ESTRADIOL
     Indication: POOR QUALITY SLEEP
  3. PROGESTERONE. [Suspect]
     Active Substance: PROGESTERONE
     Indication: HOT FLUSH
     Dosage: 1 DF, PM ((ONE AT BEDTIME)
     Route: 048
     Dates: start: 201708
  4. PROGESTERONE. [Suspect]
     Active Substance: PROGESTERONE
     Indication: POOR QUALITY SLEEP

REACTIONS (2)
  - Cyst [Recovered/Resolved]
  - Metrorrhagia [Not Recovered/Not Resolved]
